FAERS Safety Report 13801753 (Version 1)
Quarter: 2017Q3

REPORT INFORMATION
  Report Type: Spontaneous
  Country: FR (occurrence: FR)
  Receive Date: 20170727
  Receipt Date: 20170727
  Transmission Date: 20171127
  Serious: Yes (Other)
  Sender: FDA-Public Use
  Company Number: FR-BAYER-2017-116183

PATIENT
  Age: 36 Year
  Sex: Female

DRUGS (2)
  1. PAROXETINE. [Concomitant]
     Active Substance: PAROXETINE
     Dosage: UNK
     Dates: start: 201512
  2. MIRENA [Suspect]
     Active Substance: LEVONORGESTREL
     Indication: CONTRACEPTION
     Dosage: 20 MCG/24HR, CONT
     Route: 015
     Dates: start: 20050101, end: 20170501

REACTIONS (8)
  - Depression [Recovering/Resolving]
  - Headache [Recovering/Resolving]
  - Breast discomfort [Recovering/Resolving]
  - Dyspareunia [Not Recovered/Not Resolved]
  - Weight increased [Recovering/Resolving]
  - Oedema peripheral [Not Recovered/Not Resolved]
  - Haemorrhagic ovarian cyst [Not Recovered/Not Resolved]
  - Pelvic pain [Recovering/Resolving]

NARRATIVE: CASE EVENT DATE: 2006
